FAERS Safety Report 6030670-6 (Version None)
Quarter: 2009Q1

REPORT INFORMATION
  Report Type: 
  Country: None (occurrence: None)
  Receive Date: 20090107
  Receipt Date: 20081029
  Transmission Date: 20090719
  Serious: No
  Sender: FDA-Public Use
  Company Number: A0754022A

PATIENT
  Age: 17 Year
  Sex: Female

DRUGS (1)
  1. TAGAMET HB 200 [Suspect]

REACTIONS (1)
  - ABDOMINAL PAIN UPPER [None]
